FAERS Safety Report 6703506-5 (Version None)
Quarter: 2010Q2

REPORT INFORMATION
  Report Type: 
  Country: None (occurrence: None)
  Receive Date: 20100430
  Receipt Date: 20090217
  Transmission Date: 20101027
  Serious: Yes (Other)
  Sender: FDA-Public Use
  Company Number: DE-BAYER-201020955GPV

PATIENT
  Sex: Male
  Weight: 1.695 kg

DRUGS (6)
  1. FLUDARABINE [Suspect]
     Indication: ACUTE MYELOID LEUKAEMIA RECURRENT
     Dosage: MATERNAL GO-FLAG-IDA SALVAGE THERAPY STARTING IN WEEK 28
     Route: 064
  2. CYTARABINE [Suspect]
     Indication: ACUTE MYELOID LEUKAEMIA RECURRENT
     Dosage: MATERNAL HAM-PROTOCOL TREATMENT STARTING IN WEEK 22+2
     Route: 064
  3. CYTARABINE [Suspect]
     Dosage: MATERNAL GO-FLAG-IDA SALVAGE THERAPY STARTING IN WEEK 28
     Route: 064
  4. IDARUBICIN HCL [Suspect]
     Indication: ACUTE MYELOID LEUKAEMIA RECURRENT
     Dosage: MATERNAL GO-FLAG-IDA SALVAGE THERAPY STARTING IN WEEK 28
     Route: 064
  5. GEMTUZUMAB-OZOGAMICIN [Suspect]
     Indication: ACUTE MYELOID LEUKAEMIA RECURRENT
     Dosage: MATERNAL GO-FLAG-IDA SALVAGE THERAPY STARTING IN WEEK 28
     Route: 064
  6. MITOXANTRONE [Suspect]
     Indication: ACUTE MYELOID LEUKAEMIA RECURRENT
     Dosage: MATERNAL HAM-PROTOCOL TREATMENT STARTING IN WEEK 22+2
     Route: 064

REACTIONS (4)
  - ANAEMIA [None]
  - CONGENITAL HYDROCEPHALUS [None]
  - FOETAL GROWTH RETARDATION [None]
  - PERIPARTUM CARDIOMYOPATHY [None]
